FAERS Safety Report 12579971 (Version 8)
Quarter: 2017Q2

REPORT INFORMATION
  Report Type: Spontaneous
  Country: US (occurrence: US)
  Receive Date: 20160721
  Receipt Date: 20170607
  Transmission Date: 20170830
  Serious: Yes (Other)
  Sender: FDA-Public Use
  Company Number: US-SA-2016SA132693

PATIENT
  Age: 74 Year
  Sex: Female

DRUGS (7)
  1. HYDROCHLOROTHIAZIDE. [Concomitant]
     Active Substance: HYDROCHLOROTHIAZIDE
  2. VITAMIN D [Concomitant]
     Active Substance: CHOLECALCIFEROL
  3. ALIROCUMAB PREFILLED PEN [Concomitant]
     Active Substance: ALIROCUMAB
     Dates: start: 20160602
  4. IRON [Concomitant]
     Active Substance: IRON
  5. PRALUENT [Suspect]
     Active Substance: ALIROCUMAB
     Dosage: EXPIRATION DATE 15-MAY-?STRENGTH 75 MG
     Route: 058
     Dates: start: 20160526
  6. PLAVIX [Suspect]
     Active Substance: CLOPIDOGREL BISULFATE
     Route: 065
  7. ENALAPRIL [Concomitant]
     Active Substance: ENALAPRIL

REACTIONS (11)
  - Procedural pain [Unknown]
  - Arthropathy [Unknown]
  - Arthropathy [Unknown]
  - Rash [Unknown]
  - Increased tendency to bruise [Unknown]
  - Contusion [Unknown]
  - Tibia fracture [Unknown]
  - Musculoskeletal discomfort [Unknown]
  - Foot fracture [Unknown]
  - Back disorder [Unknown]
  - Bone disorder [Unknown]

NARRATIVE: CASE EVENT DATE: 2016
